FAERS Safety Report 5866463-X (Version None)
Quarter: 2008Q3

REPORT INFORMATION
  Report Type: 
  Country: None (occurrence: None)
  Receive Date: 20080902
  Receipt Date: 20080822
  Transmission Date: 20090109
  Serious: Yes (Hospitalization, Disabling)
  Sender: FDA-Public Use
  Company Number: HU-JNJFOC-20080706731

PATIENT
  Age: 53 Year
  Sex: Female

DRUGS (1)
  1. TAVANIC [Suspect]
     Indication: PNEUMONIA
     Route: 048

REACTIONS (1)
  - SCIATICA [None]
